FAERS Safety Report 8167013-8 (Version None)
Quarter: 2012Q1

REPORT INFORMATION
  Report Type: 
  Country: None (occurrence: None)
  Receive Date: 20120227
  Receipt Date: 20120220
  Transmission Date: 20120608
  Serious: Yes (Hospitalization, Other)
  Sender: FDA-Public Use
  Company Number: JP-JNJFOC-20111211854

PATIENT
  Age: 65 Year
  Sex: Male

DRUGS (5)
  1. MUCOSTA [Concomitant]
     Route: 048
  2. LOXONIN [Concomitant]
     Route: 065
  3. MYONAL [Concomitant]
     Route: 048
  4. TRAMADOL HYDROCHLORIDE/ACETAMINOPHEN [Suspect]
     Indication: PRODUCT USED FOR UNKNOWN INDICATION
     Dosage: ONE DOSE PER DAY
     Route: 048
     Dates: start: 20111228, end: 20111228
  5. UNKNOWN MEDICATION [Suspect]
     Indication: PRODUCT USED FOR UNKNOWN INDICATION
     Route: 065

REACTIONS (1)
  - LOSS OF CONSCIOUSNESS [None]
